FAERS Safety Report 8839530 (Version 1)
Quarter: 2012Q4

REPORT INFORMATION
  Report Type: Spontaneous
  Country: US (occurrence: None)
  Receive Date: 20121012
  Receipt Date: 20121012
  Transmission Date: 20130627
  Serious: Yes (Life-Threatening, Hospitalization)
  Sender: FDA-Public Use
  Company Number: None

PATIENT
  Age: 71 Year
  Sex: Male

DRUGS (1)
  1. CARFILZOMIB [Suspect]
     Indication: ACUTE MYELOID LEUKEMIA RECURRENT
     Dosage: 89mg IV
     Route: 042
     Dates: start: 20120816, end: 20121002

REACTIONS (8)
  - Dyspnoea [None]
  - Pain in extremity [None]
  - Dizziness [None]
  - Palpitations [None]
  - Nausea [None]
  - Myocardial infarction [None]
  - Troponin increased [None]
  - Pericardial effusion [None]
